FAERS Safety Report 24611546 (Version 2)
Quarter: 2024Q4

REPORT INFORMATION
  Report Type: Spontaneous
  Country: TH (occurrence: TH)
  Receive Date: 20241113
  Receipt Date: 20241113
  Transmission Date: 20250115
  Serious: Yes (Other)
  Sender: MERCK
  Company Number: TH-009507513-2411THA003273

PATIENT
  Age: 75 Year
  Sex: Male

DRUGS (3)
  1. KEYTRUDA [Suspect]
     Active Substance: PEMBROLIZUMAB
     Indication: Transitional cell carcinoma
     Dosage: 200 MILLIGRAM
     Dates: start: 20220303
  2. ENFORTUMAB VEDOTIN [Suspect]
     Active Substance: ENFORTUMAB VEDOTIN
     Indication: Transitional cell carcinoma
     Dosage: 1.25 MG/KG (ON D1, D8)
     Dates: start: 20220303
  3. ENFORTUMAB VEDOTIN [Suspect]
     Active Substance: ENFORTUMAB VEDOTIN
     Dosage: 1 MILLIGRAM/KILOGRAM

REACTIONS (8)
  - Dermatitis bullous [Unknown]
  - Neuropathy peripheral [Unknown]
  - Skin lesion [Recovering/Resolving]
  - Erythema [Unknown]
  - Symmetrical drug-related intertriginous and flexural exanthema [Unknown]
  - Skin lesion [Not Recovered/Not Resolved]
  - Oral disorder [Unknown]
  - Lichen planus [Unknown]

NARRATIVE: CASE EVENT DATE: 20220101
